FAERS Safety Report 14782330 (Version 1)
Quarter: 2018Q2

REPORT INFORMATION
  Report Type: Spontaneous
  Country: US (occurrence: US)
  Receive Date: 20180420
  Receipt Date: 20180420
  Transmission Date: 20180711
  Serious: No
  Sender: FDA-Public Use
  Company Number: US-PFIZER INC-2018157162

PATIENT
  Sex: Female

DRUGS (1)
  1. ADVIL [Suspect]
     Active Substance: IBUPROFEN
     Dosage: 200 MG, UNK

REACTIONS (6)
  - Pain [Unknown]
  - Eye pain [Unknown]
  - Crying [Unknown]
  - Overdose [Unknown]
  - Headache [Unknown]
  - Muscle spasms [Unknown]

NARRATIVE: CASE EVENT DATE: 20171031
